FAERS Safety Report 20561653 (Version 1)
Quarter: 2022Q1

REPORT INFORMATION
  Report Type: Spontaneous
  Country: US (occurrence: US)
  Receive Date: 20220307
  Receipt Date: 20220307
  Transmission Date: 20220423
  Serious: No
  Sender: FDA-Public Use
  Company Number: US-BIOGEN-2022BI01102686

PATIENT
  Sex: Female
  Weight: 78.088 kg

DRUGS (4)
  1. TECFIDERA [Suspect]
     Active Substance: DIMETHYL FUMARATE
     Indication: Multiple sclerosis
     Route: 048
     Dates: start: 20190611
  2. ALEVE [Concomitant]
     Active Substance: NAPROXEN SODIUM
     Route: 065
  3. NEURO-PS [Concomitant]
     Route: 065
  4. OSTEO BI-FLEX TRIPLE STRE [Concomitant]
     Route: 065

REACTIONS (1)
  - Influenza [Recovered/Resolved]
